FAERS Safety Report 5103084-0 (Version None)
Quarter: 2006Q3

REPORT INFORMATION
  Report Type: 
  Country: None (occurrence: None)
  Receive Date: 20060907
  Receipt Date: 20060827
  Transmission Date: 20061208
  Serious: Yes (Other)
  Sender: FDA-Public Use
  Company Number: 14689

PATIENT
  Age: 40 Year

DRUGS (1)
  1. AMIODARONE HCL [Suspect]
     Indication: CONGESTIVE CARDIOMYOPATHY

REACTIONS (2)
  - HEART TRANSPLANT [None]
  - HYPERTHYROIDISM [None]
